FAERS Safety Report 9307485 (Version 3)
Quarter: 2013Q2

REPORT INFORMATION
  Report Type: Spontaneous
  Country: BR (occurrence: BR)
  Receive Date: 20130524
  Receipt Date: 20130613
  Transmission Date: 20140414
  Serious: Yes (Other)
  Sender: FDA-Public Use
  Company Number: BR-ROCHE-CID000000002430718

PATIENT
  Sex: Female

DRUGS (3)
  1. XOLAIR [Suspect]
     Indication: ASTHMA
     Route: 058
  2. SERETIDE [Concomitant]
     Indication: ASTHMA
  3. ALVESCO [Concomitant]
     Indication: ASTHMA

REACTIONS (2)
  - Asthma [Recovering/Resolving]
  - Influenza [Recovering/Resolving]
